FAERS Safety Report 25128235 (Version 1)
Quarter: 2025Q1

REPORT INFORMATION
  Report Type: Spontaneous
  Country: US (occurrence: US)
  Receive Date: 20250327
  Receipt Date: 20250327
  Transmission Date: 20250409
  Serious: No
  Sender: ROCHE
  Company Number: US-ROCHE-10000239237

PATIENT
  Age: 40 Year
  Sex: Male

DRUGS (2)
  1. XOLAIR PFS [Suspect]
     Active Substance: OMALIZUMAB
     Indication: Idiopathic urticaria
     Dosage: STRENGTH 300MG/2ML
     Route: 058
  2. XOLAIR PFS [Suspect]
     Active Substance: OMALIZUMAB

REACTIONS (2)
  - Drug ineffective [Unknown]
  - Idiopathic urticaria [Unknown]
